FAERS Safety Report 8833407 (Version 2)
Quarter: 2012Q4

REPORT INFORMATION
  Report Type: 
  Country: US (occurrence: US)
  Receive Date: 20121010
  Receipt Date: 20121121
  Transmission Date: 20130627
  Serious: Yes (Other)
  Sender: FDA-Public Use
  Company Number: US-PFIZER INC-2012249857

PATIENT
  Age: 49 Year
  Sex: Female

DRUGS (6)
  1. LYRICA [Suspect]
     Dosage: 150 mg, (1 tablet q am)
  2. LYRICA [Suspect]
     Dosage: 300 mg, (150 mg, 2 tablets q pm)
  3. AMITRIPTYLINE [Concomitant]
     Dosage: 25 mg, 1x/day (1 tablet)
     Route: 048
  4. BENICAR [Concomitant]
     Dosage: 20 mg, 1x/day (take 1 tablet)
     Route: 048
  5. TRAMADOL [Concomitant]
     Dosage: 100 mg, as needed (50 mg, take 2 tablets every 6 hours as needed)
     Route: 048
  6. BYSTOLIC [Concomitant]
     Dosage: UNK

REACTIONS (9)
  - Mammogram abnormal [Unknown]
  - Depression [Unknown]
  - Intervertebral disc degeneration [Unknown]
  - Essential hypertension [Unknown]
  - Arthropathy [Unknown]
  - Gastrooesophageal reflux disease [Unknown]
  - Back pain [Unknown]
  - Neck pain [Unknown]
  - Fibromyalgia [Unknown]
